FAERS Safety Report 9132260 (Version 1)
Quarter: 2013Q1

REPORT INFORMATION
  Report Type: Spontaneous
  Country: BE (occurrence: BE)
  Receive Date: 20130107
  Receipt Date: 20130107
  Transmission Date: 20140127
  Serious: Yes (Hospitalization)
  Sender: FDA-Public Use
  Company Number: BE-PFIZER INC-2013006961

PATIENT
  Age: 5 Year
  Sex: 0

DRUGS (1)
  1. EPIPEN [Suspect]
     Dosage: 1 IN 1 TOTAL
     Route: 003

REACTIONS (2)
  - Tachycardia [Unknown]
  - Application site pain [Unknown]
